FAERS Safety Report 16822523 (Version 1)
Quarter: 2019Q3

REPORT INFORMATION
  Report Type: Spontaneous
  Country: US (occurrence: US)
  Receive Date: 20190918
  Receipt Date: 20190918
  Transmission Date: 20191005
  Serious: Yes (Other)
  Sender: FDA-Public Use
  Company Number: US-PFIZER INC-2019399965

PATIENT
  Sex: Female

DRUGS (1)
  1. PREMARIN [Suspect]
     Active Substance: ESTROGENS, CONJUGATED
     Indication: TURNER^S SYNDROME
     Dosage: UNK

REACTIONS (3)
  - Haemorrhage [Unknown]
  - Off label use [Unknown]
  - Product use in unapproved indication [Unknown]
